FAERS Safety Report 9034926 (Version 1)
Quarter: 2013Q1

REPORT INFORMATION
  Report Type: Spontaneous
  Country: JP (occurrence: None)
  Receive Date: 20130116
  Receipt Date: 20130116
  Transmission Date: 20140127
  Serious: Yes (Hospitalization, Other)
  Sender: FDA-Public Use
  Company Number: 02100-JPN-05-0375

PATIENT
  Age: 65 Year
  Sex: Male

DRUGS (3)
  1. PLETAAL [Suspect]
     Indication: CEREBRAL INFARCTION
     Route: 048
     Dates: start: 200407, end: 200507
  2. INDERAL (PROPRANOLOL HYDROCHLORIDE) [Concomitant]
  3. PERDIPIN (NICARDIPINE HYDROCHLORIDE) [Concomitant]

REACTIONS (2)
  - Systolic hypertension [None]
  - Cerebral haemorrhage [None]
